FAERS Safety Report 6865538-6 (Version None)
Quarter: 2010Q3

REPORT INFORMATION
  Report Type: 
  Country: None (occurrence: None)
  Receive Date: 20100720
  Receipt Date: 20100706
  Transmission Date: 20110219
  Serious: Yes (Hospitalization, Other)
  Sender: FDA-Public Use
  Company Number: 2010P1000196

PATIENT
  Age: 72 Year
  Sex: Female

DRUGS (2)
  1. PROPAFENONE HCL TABLET 150 MG (NO PREF. NAME) [Suspect]
     Indication: ATRIAL FIBRILLATION
     Dosage: 300 MG; BID; PO
     Route: 048
  2. VERAPAMIL [Concomitant]

REACTIONS (11)
  - ATRIAL FIBRILLATION [None]
  - BRADYCARDIA [None]
  - CHEST DISCOMFORT [None]
  - DIARRHOEA [None]
  - ELECTROCARDIOGRAM QRS COMPLEX PROLONGED [None]
  - ELECTROCARDIOGRAM QT PROLONGED [None]
  - HYPOTENSION [None]
  - MALAISE [None]
  - THERAPEUTIC AGENT TOXICITY [None]
  - UNRESPONSIVE TO STIMULI [None]
  - VOMITING [None]
